FAERS Safety Report 12731793 (Version 3)
Quarter: 2017Q1

REPORT INFORMATION
  Report Type: Spontaneous
  Country: US (occurrence: US)
  Receive Date: 20160912
  Receipt Date: 20170303
  Transmission Date: 20170428
  Serious: Yes (Hospitalization)
  Sender: FDA-Public Use
  Company Number: US-JNJFOC-20160802315

PATIENT
  Age: 47 Year
  Sex: Female

DRUGS (1)
  1. XARELTO [Suspect]
     Active Substance: RIVAROXABAN
     Indication: DEEP VEIN THROMBOSIS
     Dosage: 15MG/20 MG ONCE A DAY
     Route: 048
     Dates: start: 20160218, end: 20160226

REACTIONS (1)
  - Menorrhagia [Recovering/Resolving]

NARRATIVE: CASE EVENT DATE: 201602
